FAERS Safety Report 8600271 (Version 2)
Quarter: 2013Q3

REPORT INFORMATION
  Report Type: Spontaneous
  Country: US (occurrence: US)
  Receive Date: 20120606
  Receipt Date: 20130726
  Transmission Date: 20140515
  Serious: No
  Sender: FDA-Public Use
  Company Number: US-ASTRAZENECA-2012SE35093

PATIENT
  Age: 53 Year
  Sex: Female

DRUGS (15)
  1. NEXIUM [Suspect]
     Indication: PANCREAS TRANSPLANT
     Dosage: ONCE DAILY
     Route: 048
     Dates: start: 2001, end: 2001
  2. NEXIUM [Suspect]
     Indication: RENAL TRANSPLANT
     Dosage: ONCE DAILY
     Route: 048
     Dates: start: 2001, end: 2001
  3. NEXIUM [Suspect]
     Indication: PANCREAS TRANSPLANT
     Route: 048
     Dates: start: 2001
  4. NEXIUM [Suspect]
     Indication: RENAL TRANSPLANT
     Route: 048
     Dates: start: 2001
  5. CALCIUM [Concomitant]
  6. MYFORIC [Concomitant]
  7. JENNGRAPH [Concomitant]
  8. LIPITOR [Concomitant]
  9. ATVIN [Concomitant]
  10. AMTRITOLINE [Concomitant]
  11. VITAMIN C [Concomitant]
  12. PROZAC [Concomitant]
  13. ASPIRIN [Concomitant]
  14. INSULIN [Concomitant]
  15. ATTLENOGI [Concomitant]

REACTIONS (7)
  - Osteoporosis [Unknown]
  - Bone density decreased [Unknown]
  - Multiple fractures [Unknown]
  - Glaucoma [Unknown]
  - Diabetes mellitus [Unknown]
  - Arthritis [Unknown]
  - Calcium deficiency [Unknown]
